FAERS Safety Report 17895524 (Version 1)
Quarter: 2020Q2

REPORT INFORMATION
  Report Type: Spontaneous
  Country: GB (occurrence: GB)
  Receive Date: 20200615
  Receipt Date: 20200615
  Transmission Date: 20200714
  Serious: Yes (Life-Threatening, Hospitalization)
  Sender: FDA-Public Use
  Company Number: GB-PFIZER INC-2020230123

PATIENT
  Age: 92 Year
  Sex: Female

DRUGS (11)
  1. CASSIA SENNA [Concomitant]
     Active Substance: HERBALS\SENNOSIDES
     Dosage: 15MG AT NIGHT
  2. FOLIC ACID. [Concomitant]
     Active Substance: FOLIC ACID
     Dosage: 5 MG, 1X/DAY
  3. DOCUSATE [Concomitant]
     Active Substance: DOCUSATE
     Dosage: 400 MG, 1X/DAY
  4. CALCI-D [Concomitant]
     Active Substance: CALCIUM CARBONATE\CHOLECALCIFEROL
     Dosage: 1 DF DAILY AT TEA TIME, 800UNIT/2.5G
  5. OXYCODONE [Concomitant]
     Active Substance: OXYCODONE
     Dosage: 2.5MG 5MG/5ML LIQUID, UP TO 4 TIMES A DAY
  6. BUPRENORPHINE. [Concomitant]
     Active Substance: BUPRENORPHINE
     Dosage: 5 UG, WEEKLY
     Route: 062
  7. CARBOCISTEINE [Suspect]
     Active Substance: CARBOCYSTEINE
     Dosage: 30ML ONCE DAILY 250MG/5ML, TWO 5 ML SPOONFULS
  8. PARACETAMOL [Concomitant]
     Active Substance: ACETAMINOPHEN
     Dosage: 500MG EVERY 4-6 HOURS UP TO FOUR TIMES A DAY
  9. PROPRANOLOL [Concomitant]
     Active Substance: PROPRANOLOL HYDROCHLORIDE
     Dosage: 10MG TWICE A DAY AS NECESSARY
  10. LORAZEPAM. [Concomitant]
     Active Substance: LORAZEPAM
     Dosage: 0.5MG THREE TIMES A DAY
  11. FRAGMIN [Suspect]
     Active Substance: DALTEPARIN SODIUM
     Dosage: 5,000UNITS/0.2ML, AT TEA TIME FOR 25/7

REACTIONS (4)
  - Melaena [Unknown]
  - Haematemesis [Unknown]
  - Pneumonia aspiration [Unknown]
  - Upper gastrointestinal haemorrhage [Unknown]
